FAERS Safety Report 22310843 (Version 1)
Quarter: 2023Q2

REPORT INFORMATION
  Report Type: Spontaneous
  Country: FR (occurrence: FR)
  Receive Date: 20230511
  Receipt Date: 20230511
  Transmission Date: 20230721
  Serious: Yes (Other)
  Sender: FDA-Public Use
  Company Number: None

PATIENT
  Age: 66 Year
  Sex: Female
  Weight: 36 kg

DRUGS (2)
  1. CISPLATIN [Suspect]
     Active Substance: CISPLATIN
     Indication: Chemotherapy
     Dosage: UNK (UNKNOWN DOSE, 1 FP)
     Route: 042
     Dates: start: 20230124
  2. NAVELBINE [Suspect]
     Active Substance: VINORELBINE TARTRATE
     Indication: Chemotherapy
     Dosage: UNK, (UNKNOWN DOSE)
     Route: 042
     Dates: start: 20230124

REACTIONS (1)
  - Constipation [Recovered/Resolved]

NARRATIVE: CASE EVENT DATE: 20230129
